FAERS Safety Report 6723687-7 (Version None)
Quarter: 2010Q2

REPORT INFORMATION
  Report Type: 
  Country: None (occurrence: None)
  Receive Date: 20100513
  Receipt Date: 20100504
  Transmission Date: 20101027
  Serious: Yes (Hospitalization)
  Sender: FDA-Public Use
  Company Number: US-PURDUE-USA-2010-0043751

PATIENT
  Age: 92 Year
  Sex: Male

DRUGS (1)
  1. PERI-COLACE [Suspect]
     Indication: CONSTIPATION
     Dosage: UNK
     Dates: start: 20100419

REACTIONS (4)
  - ACUTE PRERENAL FAILURE [None]
  - FLUID IMBALANCE [None]
  - MUCOUS STOOLS [None]
  - OVERDOSE [None]
